FAERS Safety Report 8395240-3 (Version None)
Quarter: 2012Q2

REPORT INFORMATION
  Report Type: 
  Country: None (occurrence: None)
  Receive Date: 20120530
  Receipt Date: 20120517
  Transmission Date: 20120825
  Serious: Yes (Other)
  Sender: FDA-Public Use
  Company Number: US-BAYER-2012-049827

PATIENT
  Age: 26 Year

DRUGS (3)
  1. TOPAMAX [Concomitant]
     Indication: HEADACHE
     Dosage: DAILY DOSE 100 MG
  2. ALEVE (CAPLET) [Suspect]
     Indication: MIGRAINE
     Route: 048
  3. TYLENOL [Concomitant]
     Indication: HEADACHE
     Dosage: UNK UNK, PRN

REACTIONS (2)
  - FEELING ABNORMAL [None]
  - OESOPHAGEAL ULCER [None]
